FAERS Safety Report 13096540 (Version 2)
Quarter: 2017Q1

REPORT INFORMATION
  Report Type: Spontaneous
  Country: US (occurrence: US)
  Receive Date: 20170109
  Receipt Date: 20170116
  Transmission Date: 20170428
  Serious: Yes (Death)
  Sender: FDA-Public Use
  Company Number: US-ROCHE-1876568

PATIENT
  Age: 60 Year
  Sex: Male

DRUGS (1)
  1. XOLAIR [Suspect]
     Active Substance: OMALIZUMAB
     Indication: ASTHMA
     Dosage: ON 07/DEC/2016, HE RECEIVED LAST DOSE OF OMALIZUMAB INJECTION
     Route: 058
     Dates: start: 20160505

REACTIONS (2)
  - Upper respiratory tract infection [Unknown]
  - Death [Fatal]

NARRATIVE: CASE EVENT DATE: 20170101
